FAERS Safety Report 6015150-6 (Version None)
Quarter: 2008Q4

REPORT INFORMATION
  Report Type: 
  Country: None (occurrence: None)
  Receive Date: 20081219
  Receipt Date: 20081219
  Transmission Date: 20090506
  Serious: Yes (Other)
  Sender: FDA-Public Use
  Company Number: None

PATIENT
  Age: 3 Year
  Sex: Female
  Weight: 13.6079 kg

DRUGS (1)
  1. CEFUROXIME AXETIL [Suspect]
     Indication: EAR INFECTION
     Dosage: 4 ML 2 X DAY PO
     Route: 048
     Dates: start: 20081212, end: 20081212

REACTIONS (6)
  - CRYING [None]
  - ORAL DISCOMFORT [None]
  - PAIN [None]
  - PRODUCT QUALITY ISSUE [None]
  - SCREAMING [None]
  - THROAT IRRITATION [None]
